FAERS Safety Report 19966644 (Version 6)
Quarter: 2025Q1

REPORT INFORMATION
  Report Type: Spontaneous
  Country: SE (occurrence: SE)
  Receive Date: 20211019
  Receipt Date: 20250208
  Transmission Date: 20250409
  Serious: Yes (Other)
  Sender: CELLTRION
  Company Number: SE-CELLTRION INC.-2021SE010908

PATIENT

DRUGS (10)
  1. RITUXIMAB [Suspect]
     Active Substance: RITUXIMAB
     Indication: Post transplant lymphoproliferative disorder
     Dosage: QW (FOUR CONSEUTIVE WEEKS)/WEEKLY DOSES OF RITUXIMAB DURING FOUR CONSECUTIVE WEEKS
     Route: 042
     Dates: start: 2020
  2. RITUXIMAB [Suspect]
     Active Substance: RITUXIMAB
     Indication: Post transplant lymphoproliferative disorder
     Route: 042
  3. RITUXIMAB [Suspect]
     Active Substance: RITUXIMAB
     Indication: Immunosuppression
  4. PREDNISOLONE [Suspect]
     Active Substance: PREDNISOLONE
     Indication: Immunosuppression
     Route: 065
  5. PREDNISOLONE [Suspect]
     Active Substance: PREDNISOLONE
     Indication: Immunosuppressant drug therapy
     Route: 048
     Dates: start: 201906
  6. TACROLIMUS [Suspect]
     Active Substance: TACROLIMUS
     Indication: Immunosuppression
     Route: 065
  7. TACROLIMUS [Suspect]
     Active Substance: TACROLIMUS
     Indication: Immunosuppressant drug therapy
     Route: 048
     Dates: start: 201906
  8. TRAMETINIB [Suspect]
     Active Substance: TRAMETINIB
     Indication: Adjuvant therapy
     Route: 048
  9. TRAMETINIB [Suspect]
     Active Substance: TRAMETINIB
     Indication: Hepatic angiosarcoma
     Route: 065
  10. TRAMETINIB [Suspect]
     Active Substance: TRAMETINIB
     Indication: Immunosuppression

REACTIONS (16)
  - Decreased immune responsiveness [Unknown]
  - Polymerase chain reaction positive [Unknown]
  - Post transplant lymphoproliferative disorder [Unknown]
  - Adenovirus infection [Unknown]
  - B-lymphocyte count decreased [Unknown]
  - COVID-19 [Unknown]
  - COVID-19 [Recovered/Resolved]
  - COVID-19 [Recovering/Resolving]
  - Post-acute COVID-19 syndrome [Unknown]
  - Rhinovirus infection [Unknown]
  - Vaccine virus shedding [Unknown]
  - Viral infection [Unknown]
  - Off label use [Unknown]
  - Off label use [Unknown]
  - SARS-CoV-2 antibody test negative [Unknown]
  - Pyrexia [Unknown]

NARRATIVE: CASE EVENT DATE: 20200101
